FAERS Safety Report 25208196 (Version 2)
Quarter: 2025Q2

REPORT INFORMATION
  Report Type: Spontaneous
  Country: US (occurrence: US)
  Receive Date: 20250417
  Receipt Date: 20250424
  Transmission Date: 20250716
  Serious: Yes (Other)
  Sender: JOHNSON AND JOHNSON
  Company Number: US-JNJFOC-20250415167

PATIENT
  Age: 30 Year
  Sex: Female

DRUGS (1)
  1. TREMFYA [Suspect]
     Active Substance: GUSELKUMAB
     Indication: Inflammatory bowel disease
     Route: 041

REACTIONS (5)
  - Tachycardia [Unknown]
  - Infusion related reaction [Unknown]
  - Arthralgia [Unknown]
  - Flushing [Unknown]
  - Hypertension [Unknown]
